FAERS Safety Report 9714277 (Version 1)
Quarter: 2013Q4

REPORT INFORMATION
  Report Type: Spontaneous
  Country: US (occurrence: US)
  Receive Date: 20131126
  Receipt Date: 20131126
  Transmission Date: 20140711
  Serious: Yes (Hospitalization)
  Sender: FDA-Public Use
  Company Number: US-009507513-1311USA008047

PATIENT
  Age: 50 Year
  Sex: Female

DRUGS (14)
  1. SINGULAIR [Suspect]
     Indication: PRODUCT USED FOR UNKNOWN INDICATION
     Route: 065
  2. CELEBREX [Suspect]
     Indication: PRODUCT USED FOR UNKNOWN INDICATION
     Dosage: 200 MG DAILY
     Route: 048
  3. LEXAPRO [Concomitant]
     Indication: PRODUCT USED FOR UNKNOWN INDICATION
     Route: 065
  4. NEXIUM [Suspect]
     Indication: PRODUCT USED FOR UNKNOWN INDICATION
     Route: 065
  5. ADVAIR [Concomitant]
     Indication: PRODUCT USED FOR UNKNOWN INDICATION
     Route: 065
  6. XYZAL [Concomitant]
     Indication: PRODUCT USED FOR UNKNOWN INDICATION
     Route: 065
  7. MAGNESIA [MILK OF] [Concomitant]
     Indication: PRODUCT USED FOR UNKNOWN INDICATION
     Route: 065
  8. MS CONTIN [Concomitant]
     Indication: PRODUCT USED FOR UNKNOWN INDICATION
     Route: 065
  9. POTASSIUM (UNSPECIFIED) [Concomitant]
     Indication: PRODUCT USED FOR UNKNOWN INDICATION
     Route: 065
  10. MIRAPEX [Concomitant]
     Indication: PRODUCT USED FOR UNKNOWN INDICATION
     Route: 065
  11. LYRICA [Suspect]
     Indication: PRODUCT USED FOR UNKNOWN INDICATION
     Dosage: 50 MG 2X/DAY
     Route: 048
  12. CARAFATE [Concomitant]
     Indication: PRODUCT USED FOR UNKNOWN INDICATION
     Route: 065
  13. TERIPARATIDE [Suspect]
     Indication: OSTEOPOROSIS
     Dosage: 20 UG
     Route: 065
  14. TERIPARATIDE [Suspect]
     Dosage: 20 UG

REACTIONS (19)
  - Activities of daily living impaired [Unknown]
  - Abdominal pain upper [Unknown]
  - Anxiety [Unknown]
  - Arthralgia [Unknown]
  - Diarrhoea [Unknown]
  - Dizziness [Unknown]
  - Drug dose omission [Unknown]
  - Eye discharge [Unknown]
  - Eye disorder [Unknown]
  - Fatigue [Unknown]
  - Insomnia [Unknown]
  - Keratitis [Unknown]
  - Malaise [Unknown]
  - Mental impairment [Unknown]
  - Nausea [Unknown]
  - Pain [Unknown]
  - Retching [Unknown]
  - Visual impairment [Unknown]
  - Vomiting [Unknown]
